FAERS Safety Report 5536162-2 (Version None)
Quarter: 2007Q4

REPORT INFORMATION
  Report Type: 
  Country: None (occurrence: None)
  Receive Date: 20071204
  Receipt Date: 20071121
  Transmission Date: 20080405
  Serious: Yes (Death)
  Sender: FDA-Public Use
  Company Number: 2007BI024839

PATIENT
  Age: 58 Year
  Sex: Male

DRUGS (2)
  1. NATALIZUMAB [Suspect]
     Indication: MULTIPLE SCLEROSIS
     Dosage: 300 MG; QM; IV
     Route: 042
     Dates: start: 20061226, end: 20070101
  2. AVONEX [Concomitant]

REACTIONS (3)
  - ACCIDENTAL DEATH [None]
  - DROWNING [None]
  - FALL [None]
